FAERS Safety Report 7934573-9 (Version None)
Quarter: 2011Q4

REPORT INFORMATION
  Report Type: 
  Country: None (occurrence: None)
  Receive Date: 20111122
  Receipt Date: 20111107
  Transmission Date: 20120403
  Serious: Yes (Hospitalization)
  Sender: FDA-Public Use
  Company Number: US-WATSON-2011-18881

PATIENT
  Sex: Female

DRUGS (1)
  1. NAPROXEN [Suspect]
     Indication: RHEUMATOID ARTHRITIS
     Dosage: USED FOR ^NEARLY 8 MONTHS^
     Route: 048

REACTIONS (6)
  - DIARRHOEA [None]
  - DEHYDRATION [None]
  - GASTRIC ULCER HAEMORRHAGE [None]
  - MELAENA [None]
  - GASTRIC HAEMORRHAGE [None]
  - DIZZINESS [None]
